FAERS Safety Report 20020011 (Version 2)
Quarter: 2021Q4

REPORT INFORMATION
  Report Type: Spontaneous
  Country: US (occurrence: None)
  Receive Date: 20211101
  Receipt Date: 20211202
  Transmission Date: 20220304
  Serious: No
  Sender: FDA-Public Use
  Company Number: 2021A759995

PATIENT
  Sex: Female
  Weight: 86.2 kg

DRUGS (1)
  1. PULMICORT FLEXHALER [Suspect]
     Active Substance: BUDESONIDE
     Indication: Cough
     Dosage: 180 MCG, INHALATION, 2 PUFFS TWICE DAILY
     Route: 055

REACTIONS (6)
  - Cough [Unknown]
  - Device use issue [Unknown]
  - Device issue [Unknown]
  - Off label use [Unknown]
  - Incorrect dose administered by device [Unknown]
  - Drug ineffective [Unknown]
